FAERS Safety Report 19242372 (Version 2)
Quarter: 2021Q2

REPORT INFORMATION
  Report Type: Spontaneous
  Country: US (occurrence: US)
  Receive Date: 20210510
  Receipt Date: 20210521
  Transmission Date: 20210717
  Serious: Yes (Hospitalization, Other)
  Sender: FDA-Public Use
  Company Number: US-ABBVIE-21K-163-3897262-00

PATIENT
  Age: 10 Year
  Sex: Female

DRUGS (1)
  1. LUPRON DEPOT?PED [Suspect]
     Active Substance: LEUPROLIDE ACETATE
     Indication: PRECOCIOUS PUBERTY
     Route: 030

REACTIONS (4)
  - Williams syndrome [Unknown]
  - Bone abscess [Unknown]
  - Pyrexia [Unknown]
  - Abscess sterile [Unknown]

NARRATIVE: CASE EVENT DATE: 202104
